FAERS Safety Report 19366551 (Version 3)
Quarter: 2021Q4

REPORT INFORMATION
  Report Type: Spontaneous
  Country: US (occurrence: US)
  Receive Date: 20210603
  Receipt Date: 20211025
  Transmission Date: 20220303
  Serious: Yes (Life-Threatening, Hospitalization)
  Sender: FDA-Public Use
  Company Number: US-PFIZER INC-2021601587

PATIENT
  Age: 55 Year
  Sex: Male

DRUGS (8)
  1. BUPRENORPHINE [Suspect]
     Active Substance: BUPRENORPHINE
     Indication: Procedural pain
     Dosage: 8 MG
  2. BUPRENORPHINE [Suspect]
     Active Substance: BUPRENORPHINE
     Dosage: 4 MG
  3. BUPRENORPHINE [Suspect]
     Active Substance: BUPRENORPHINE
     Dosage: 4 MG
  4. METHADONE [Suspect]
     Active Substance: METHADONE HYDROCHLORIDE
     Indication: Procedural pain
     Dosage: GRADUALLY ESCALATED TO 70 MG/DAY
  5. METHADONE [Suspect]
     Active Substance: METHADONE HYDROCHLORIDE
     Dosage: 30 MG NOON DOSE, 20 MG AM
  6. OXYMORPHONE [Suspect]
     Active Substance: OXYMORPHONE
     Indication: Procedural pain
     Dosage: GRADUALLY ESCALATED TO 200 MG/DAY
  7. OXYMORPHONE [Suspect]
     Active Substance: OXYMORPHONE
     Dosage: 40 MG MORNING
  8. MIDAZOLAM [Concomitant]
     Active Substance: MIDAZOLAM
     Dosage: UNK

REACTIONS (1)
  - Drug withdrawal syndrome [Recovering/Resolving]
